FAERS Safety Report 8312511-7 (Version None)
Quarter: 2012Q2

REPORT INFORMATION
  Report Type: 
  Country: None (occurrence: None)
  Receive Date: 20120425
  Receipt Date: 20120420
  Transmission Date: 20120825
  Serious: Yes (Hospitalization)
  Sender: FDA-Public Use
  Company Number: US-MERCK-1204USA02998

PATIENT
  Age: 83 Year
  Sex: Male
  Weight: 65 kg

DRUGS (5)
  1. JANUVIA [Suspect]
     Indication: DIABETES MELLITUS
     Route: 048
     Dates: start: 20110101
  2. NORVASC [Suspect]
     Indication: HYPERTENSION
     Route: 048
  3. NEURONTIN [Suspect]
     Route: 065
     Dates: start: 20110101
  4. GLUCOTROL [Suspect]
     Indication: HERPES ZOSTER
     Route: 048
  5. FENTANYL [Suspect]
     Indication: NEUROPATHY PERIPHERAL
     Dosage: PATCH /EVERY 72 HOURS
     Route: 065
     Dates: start: 20110101

REACTIONS (1)
  - MALAISE [None]
